FAERS Safety Report 5845129-6 (Version None)
Quarter: 2008Q3

REPORT INFORMATION
  Report Type: 
  Country: None (occurrence: None)
  Receive Date: 20080813
  Receipt Date: 20080813
  Transmission Date: 20090109
  Serious: Yes (Other)
  Sender: FDA-Public Use
  Company Number: None

PATIENT
  Sex: Female
  Weight: 81.6475 kg

DRUGS (1)
  1. ZICAM NASAL SWABS  MATRIXX CORP [Suspect]
     Indication: NASOPHARYNGITIS
     Dates: start: 20080525, end: 20080526

REACTIONS (2)
  - ANOSMIA [None]
  - NO THERAPEUTIC RESPONSE [None]
